FAERS Safety Report 4706120-6 (Version None)
Quarter: 2005Q2

REPORT INFORMATION
  Report Type: 
  Country: None (occurrence: None)
  Receive Date: 20050627
  Receipt Date: 20040804
  Transmission Date: 20051028
  Serious: Yes (Other)
  Sender: FDA-Public Use
  Company Number: US-JNJFOC-20040801631

PATIENT
  Age: 44 Year
  Sex: Female

DRUGS (4)
  1. DURAGESIC-100 [Suspect]
     Indication: PAIN
     Dosage: 75 UG/HR, 1 IN 72 HOUR, TRANSDERMAL
     Route: 062
     Dates: start: 20030101
  2. TYLOX [Concomitant]
  3. WELLBUTRIN [Concomitant]
  4. SYNTHROID (LEVOTHYROXINE SODIUM) TABLETS [Concomitant]

REACTIONS (5)
  - AGGRESSION [None]
  - BLOOD PRESSURE DECREASED [None]
  - FEELING JITTERY [None]
  - NERVOUSNESS [None]
  - UNEVALUABLE EVENT [None]
